FAERS Safety Report 6188705-6 (Version None)
Quarter: 2009Q2

REPORT INFORMATION
  Report Type: 
  Country: None (occurrence: None)
  Receive Date: 20090511
  Receipt Date: 20090511
  Transmission Date: 20091009
  Serious: Yes (Death)
  Sender: FDA-Public Use
  Company Number: None

PATIENT
  Sex: Female
  Weight: 68.0396 kg

DRUGS (20)
  1. NAMENDA [Suspect]
  2. NITRO DURA [Concomitant]
  3. AMITRIPTYLINE HCL [Concomitant]
  4. ACTONEL [Concomitant]
  5. CORAL CALUIM [Concomitant]
  6. ATACAND [Concomitant]
  7. PRILOSEC [Concomitant]
  8. CELEBREX [Concomitant]
  9. PRAVACHOL [Concomitant]
  10. MICRO KCL [Concomitant]
  11. PROZAC [Concomitant]
  12. CORICIDIN [Concomitant]
  13. IBUPROFEN [Concomitant]
  14. TYLENOL (CAPLET) [Concomitant]
  15. TUMS [Concomitant]
  16. VITAMIN D [Concomitant]
  17. VITAMIN B-12 [Concomitant]
  18. LIPITLOR [Concomitant]
  19. CAPTOPRIL [Concomitant]
  20. BENADRYL [Concomitant]

REACTIONS (10)
  - CEREBRAL HAEMORRHAGE [None]
  - CEREBROVASCULAR ACCIDENT [None]
  - CONDITION AGGRAVATED [None]
  - DRUG INEFFECTIVE [None]
  - FALL [None]
  - HEART VALVE INCOMPETENCE [None]
  - INTRACARDIAC THROMBUS [None]
  - MEMORY IMPAIRMENT [None]
  - SCREAMING [None]
  - URINARY TRACT INFECTION [None]
